FAERS Safety Report 8542706-9 (Version None)
Quarter: 2012Q3

REPORT INFORMATION
  Report Type: 
  Country: None (occurrence: None)
  Receive Date: 20120727
  Receipt Date: 20120718
  Transmission Date: 20120928
  Serious: Yes (Hospitalization, Other)
  Sender: FDA-Public Use
  Company Number: US-BIOGENIDEC-2012BI023794

PATIENT
  Age: 62 Year
  Sex: Male

DRUGS (5)
  1. NORVASC [Concomitant]
     Indication: HYPERTENSION
  2. METOPROLOL SUCCINATE [Concomitant]
     Indication: HYPERTENSION
  3. HYTRIN [Concomitant]
     Indication: HYPERTENSION
  4. TYSABRI [Suspect]
     Indication: MULTIPLE SCLEROSIS
     Route: 042
     Dates: start: 20090811
  5. PRISTIQ [Concomitant]
     Indication: DEPRESSION

REACTIONS (4)
  - CORONARY ARTERY BYPASS [None]
  - CEREBROVASCULAR ACCIDENT [None]
  - VIITH NERVE PARALYSIS [None]
  - DRUG SPECIFIC ANTIBODY PRESENT [None]
